FAERS Safety Report 21773555 (Version 4)
Quarter: 2023Q2

REPORT INFORMATION
  Report Type: Report from Study
  Country: IT (occurrence: IT)
  Receive Date: 20221223
  Receipt Date: 20230404
  Transmission Date: 20230721
  Serious: Yes (Death, Other)
  Sender: FDA-Public Use
  Company Number: IT-TAKEDA-2021TUS032440

PATIENT
  Age: 74 Year
  Sex: Female
  Weight: 52 kg

DRUGS (10)
  1. MOBOCERTINIB [Suspect]
     Active Substance: MOBOCERTINIB
     Indication: Non-small cell lung cancer
     Dosage: 160 MILLIGRAM
     Route: 065
     Dates: start: 20201216
  2. MOBOCERTINIB [Suspect]
     Active Substance: MOBOCERTINIB
     Dosage: 120 MILLIGRAM
     Route: 065
  3. MOBOCERTINIB [Suspect]
     Active Substance: MOBOCERTINIB
     Dosage: 80 MILLIGRAM
     Route: 065
     Dates: end: 20220802
  4. BISOPROLOL [Concomitant]
     Active Substance: BISOPROLOL
     Indication: Vulval cancer
     Dosage: 2.5 MILLIGRAM, QD
     Route: 048
     Dates: start: 20201216
  5. PANTOPRAZOLE [Concomitant]
     Active Substance: PANTOPRAZOLE
     Indication: Prophylaxis
     Dosage: 20 MILLIGRAM, QD
     Route: 048
     Dates: start: 20201216
  6. FUROSEMIDE [Concomitant]
     Active Substance: FUROSEMIDE
     Indication: Vulval cancer
     Dosage: 25 MILLIGRAM, QD
     Route: 048
     Dates: start: 20201216
  7. METHYLPREDNISOLONE [Concomitant]
     Active Substance: METHYLPREDNISOLONE
     Indication: Dyspnoea
     Dosage: 8 MILLIGRAM, QD
     Route: 048
     Dates: start: 20201216
  8. ALENDRONATE [Concomitant]
     Active Substance: ALENDRONATE SODIUM
     Indication: Osteoporosis
     Dosage: 70 MILLIGRAM, 1/WEEK
     Route: 048
     Dates: start: 20201216
  9. LEVOTHYROXINE [Concomitant]
     Active Substance: LEVOTHYROXINE
     Indication: Hypothyroidism
     Dosage: 25 MICROGRAM, QD
     Route: 048
     Dates: start: 20201216
  10. DENOSUMAB [Concomitant]
     Active Substance: DENOSUMAB
     Indication: Metastasis
     Dosage: 120 MILLIGRAM
     Route: 065
     Dates: start: 20210120

REACTIONS (4)
  - Cachexia [Fatal]
  - Non-small cell lung cancer [Fatal]
  - Diarrhoea [Not Recovered/Not Resolved]
  - Therapy partial responder [Not Recovered/Not Resolved]

NARRATIVE: CASE EVENT DATE: 20201216
